FAERS Safety Report 16059049 (Version 2)
Quarter: 2019Q1

REPORT INFORMATION
  Report Type: Report from Study
  Country: IL (occurrence: IL)
  Receive Date: 20190311
  Receipt Date: 20190329
  Transmission Date: 20190418
  Serious: Yes (Hospitalization)
  Sender: FDA-Public Use
  Company Number: PHHY2019IL052088

PATIENT
  Age: 74 Year
  Sex: Female

DRUGS (1)
  1. REVOLADE [Suspect]
     Active Substance: ELTROMBOPAG
     Indication: IMMUNE THROMBOCYTOPENIC PURPURA
     Dosage: 50 MG, QD
     Route: 048
     Dates: start: 20180830, end: 20190303

REACTIONS (4)
  - Dyspnoea exertional [Recovered/Resolved]
  - Insomnia [Unknown]
  - Dyspnoea [Recovering/Resolving]
  - Pulmonary hypertension [Unknown]

NARRATIVE: CASE EVENT DATE: 20190302
